FAERS Safety Report 4385075-0 (Version None)
Quarter: 2004Q2

REPORT INFORMATION
  Report Type: 
  Country: None (occurrence: None)
  Receive Date: 20040625
  Receipt Date: 20040617
  Transmission Date: 20050107
  Serious: Yes (Other)
  Sender: FDA-Public Use
  Company Number: PHBS2004JP07958

PATIENT
  Sex: 0

DRUGS (2)
  1. TEGRETOL [Suspect]
     Dosage: 14 TABLETS, ONCE/SINGLE
     Route: 048
  2. EURODIN [Suspect]
     Dosage: 14 TABLETS, ONCE/SINGLE
     Route: 048

REACTIONS (1)
  - SUICIDE ATTEMPT [None]
